FAERS Safety Report 7904560 (Version 2)
Quarter: 2013Q4

REPORT INFORMATION
  Report Type: Spontaneous
  Country: US (occurrence: US)
  Receive Date: 20110419
  Receipt Date: 20131114
  Transmission Date: 20140711
  Serious: Yes (Hospitalization)
  Sender: FDA-Public Use
  Company Number: US-BAYER-201038235NA

PATIENT
  Age: 46 Year
  Sex: Female

DRUGS (15)
  1. YAZ [Suspect]
     Indication: CONTRACEPTION
     Dosage: SAMPLES GIVEN, 30 DAY SUPPLY
     Dates: start: 2001, end: 2005
  2. YAZ [Suspect]
     Indication: ACNE
  3. OCELLA [Suspect]
     Indication: CONTRACEPTION
     Dosage: SAMPLES GIVEN, 30 DAY SUPPLY
     Dates: start: 2001, end: 2005
  4. OCELLA [Suspect]
     Indication: ACNE
  5. TENUATE DOSPAN [Concomitant]
     Dosage: UNK
     Dates: start: 1997, end: 2008
  6. CAFFEINE [Concomitant]
     Dosage: UNK
     Dates: start: 1998, end: 2008
  7. PRILOSEC [Concomitant]
     Dosage: 20 MG, QD
     Route: 048
     Dates: start: 20030414
  8. EFFEXOR [Concomitant]
     Dosage: 150 MG, QD
     Route: 048
     Dates: start: 20030414
  9. ATENOLOL [Concomitant]
     Dosage: 100 MG, QD
     Route: 048
     Dates: start: 20030414
  10. ASPIRIN [Concomitant]
     Dosage: 325 MG, QD
     Route: 048
     Dates: start: 20030414
  11. HYZAAR [Concomitant]
     Dosage: 12.5 MG, QD
     Route: 048
     Dates: start: 20030414
  12. METHADONE [Concomitant]
     Dosage: 40 MG, QD
     Route: 048
     Dates: start: 20030414
  13. LEXAPRO [Concomitant]
     Dosage: UNK UNK, QD
     Route: 048
     Dates: start: 20030414
  14. SYNTHROID [Concomitant]
     Dosage: 0.5 MG, QD
     Route: 048
     Dates: start: 20030414
  15. CELEBREX [Concomitant]
     Dosage: 200 MG, UNK
     Dates: start: 20060829

REACTIONS (3)
  - Gallbladder disorder [None]
  - Injury [None]
  - Myocardial infarction [None]
